FAERS Safety Report 23778268 (Version 5)
Quarter: 2024Q3

REPORT INFORMATION
  Report Type: Spontaneous
  Country: AR (occurrence: AR)
  Receive Date: 20240424
  Receipt Date: 20240719
  Transmission Date: 20241017
  Serious: No
  Sender: PFIZER
  Company Number: AR-PFIZER INC-PV202400045954

PATIENT
  Age: 6 Year
  Sex: Male

DRUGS (1)
  1. GENOTROPIN [Suspect]
     Active Substance: SOMATROPIN
     Dosage: UNK
     Dates: start: 20240313

REACTIONS (1)
  - Device leakage [Unknown]

NARRATIVE: CASE EVENT DATE: 20240328
